FAERS Safety Report 12709766 (Version 1)
Quarter: 2016Q3

REPORT INFORMATION
  Report Type: Spontaneous
  Country: US (occurrence: US)
  Receive Date: 20160902
  Receipt Date: 20160902
  Transmission Date: 20161109
  Serious: No
  Sender: FDA-Public Use
  Company Number: US-DUSA PHARMACEUTICALS, INC.-1056991

PATIENT
  Age: 16 Year
  Sex: Male

DRUGS (4)
  1. LEVULAN KERASTICK [Suspect]
     Active Substance: AMINOLEVULINIC ACID HYDROCHLORIDE
     Indication: ACNE
     Route: 061
     Dates: start: 20160218, end: 20160218
  2. ADAPALENE. [Concomitant]
     Active Substance: ADAPALENE
     Route: 061
     Dates: start: 20160201, end: 201602
  3. BENZACLIN [Concomitant]
     Active Substance: BENZOYL PEROXIDE\CLINDAMYCIN PHOSPHATE
     Route: 061
     Dates: start: 201507, end: 201602
  4. TAZORAC [Concomitant]
     Active Substance: TAZAROTENE
     Route: 061
     Dates: start: 20160201, end: 201602

REACTIONS (1)
  - Acne [Recovered/Resolved]

NARRATIVE: CASE EVENT DATE: 201603
